FAERS Safety Report 6790925-4 (Version None)
Quarter: 2010Q2

REPORT INFORMATION
  Report Type: 
  Country: None (occurrence: None)
  Receive Date: 20100624
  Receipt Date: 20100610
  Transmission Date: 20101027
  Serious: Yes (Hospitalization, Other)
  Sender: FDA-Public Use
  Company Number: US-BAYER-201018050NA

PATIENT
  Age: 17 Year
  Sex: Female
  Weight: 54 kg

DRUGS (5)
  1. YAZ [Suspect]
     Indication: MENSTRUATION IRREGULAR
     Route: 048
     Dates: start: 20070607, end: 20080220
  2. ZYRTEC [Concomitant]
     Dates: start: 19970101
  3. STEROIDS [Concomitant]
  4. ADVAIR DISKUS 100/50 [Concomitant]
     Dates: start: 19970101
  5. ANTIBIOTICS [Concomitant]

REACTIONS (6)
  - ABDOMINAL PAIN [None]
  - DIARRHOEA [None]
  - FOOD INTOLERANCE [None]
  - GALLBLADDER NON-FUNCTIONING [None]
  - PROCEDURAL PAIN [None]
  - SCAR [None]
